FAERS Safety Report 15328090 (Version 8)
Quarter: 2020Q4

REPORT INFORMATION
  Report Type: Report from Study
  Country: US (occurrence: US)
  Receive Date: 20180828
  Receipt Date: 20201223
  Transmission Date: 20210113
  Serious: Yes (Other)
  Sender: FDA-Public Use
  Company Number: PHEH2018US035220

PATIENT
  Sex: Female

DRUGS (2)
  1. AFINITOR [Suspect]
     Active Substance: EVEROLIMUS
     Dosage: 20 MG (20 MG ALTERNATING WITH 10 MG DOSE)
     Route: 048
     Dates: start: 20180622
  2. AFINITOR [Suspect]
     Active Substance: EVEROLIMUS
     Indication: ANGIOMYOLIPOMA
     Dosage: 10 MG, QD
     Route: 048
     Dates: start: 20180622

REACTIONS (18)
  - Alveolar osteitis [Unknown]
  - Swelling face [Unknown]
  - Pyrexia [Unknown]
  - Vomiting [Unknown]
  - Illness [Unknown]
  - Contusion [Unknown]
  - White blood cell count decreased [Unknown]
  - Seizure [Unknown]
  - Pain [Recovering/Resolving]
  - Back pain [Unknown]
  - COVID-19 [Unknown]
  - Tooth impacted [Unknown]
  - Haemorrhage [Unknown]
  - Oropharyngeal pain [Unknown]
  - Constipation [Unknown]
  - Fall [Unknown]
  - Headache [Unknown]
  - Nausea [Unknown]
